FAERS Safety Report 5843445-5 (Version None)
Quarter: 2008Q3

REPORT INFORMATION
  Report Type: 
  Country: None (occurrence: None)
  Receive Date: 20080811
  Receipt Date: 20080630
  Transmission Date: 20090109
  Serious: Yes (Hospitalization)
  Sender: FDA-Public Use
  Company Number: CN-1165424

PATIENT
  Age: 68 Year
  Sex: Female

DRUGS (4)
  1. AZOPT [Suspect]
     Dosage: 1 GTT TID OPHTHALMIC
     Route: 047
  2. LUMIGAN [Concomitant]
  3. FLUMETHOLON (FLUOROMETHOLONE) [Concomitant]
  4. PRANOPULIN (PRANOPROFEN) [Concomitant]

REACTIONS (3)
  - ANAPHYLACTIC REACTION [None]
  - EXCORIATION [None]
  - SKIN DISORDER [None]
